FAERS Safety Report 23485766 (Version 1)
Quarter: 2024Q1

REPORT INFORMATION
  Report Type: Report from Study
  Country: US (occurrence: US)
  Receive Date: 20240206
  Receipt Date: 20240206
  Transmission Date: 20240410
  Serious: No
  Sender: FDA-Public Use
  Company Number: US-ORG100014127-2023000231

PATIENT
  Age: 28 Year
  Sex: Female

DRUGS (19)
  1. LYSODREN [Suspect]
     Active Substance: MITOTANE
     Indication: Adrenal gland cancer
     Dosage: 3 TABLETS BY MOUTH TWICE DAILY THEREAFTER AS TOLERATED
     Route: 048
     Dates: start: 20221202
  2. Azithromycin tablet 500 mg [Concomitant]
     Indication: Product used for unknown indication
     Route: 048
  3. Cabergoline tablet 0.5 mg [Concomitant]
     Indication: Product used for unknown indication
     Route: 048
  4. cyclobenzaprine tablet 5 mg [Concomitant]
     Indication: Product used for unknown indication
     Route: 048
  5. Dilaudid Tablet 2 mg [Concomitant]
     Indication: Product used for unknown indication
     Route: 048
  6. GANIRELIX ACETATE [Concomitant]
     Active Substance: GANIRELIX ACETATE
     Indication: Product used for unknown indication
     Route: 048
  7. Gonal-F RFF INJ 300/0.5 [Concomitant]
     Indication: Product used for unknown indication
     Route: 048
  8. Hydrocort tab 5.mg [Concomitant]
     Indication: Product used for unknown indication
     Route: 048
  9. Ibuprofen tablet 600 mg [Concomitant]
     Indication: Product used for unknown indication
     Route: 048
  10. Leuprolide Inj 1 mg/0.2 [Concomitant]
     Indication: Product used for unknown indication
     Route: 048
  11. Lorazepam Tablet 1 mg [Concomitant]
     Indication: Product used for unknown indication
     Route: 048
  12. Morphine Sulfate tablet 15 mg [Concomitant]
     Indication: Product used for unknown indication
     Route: 048
  13. Novarel Inj 10000 UNT [Concomitant]
     Indication: Product used for unknown indication
     Route: 048
  14. Ondansetron tablet 8 mg [Concomitant]
     Indication: Product used for unknown indication
     Route: 048
  15. Percocet tablet 5-325 mg [Concomitant]
     Indication: Product used for unknown indication
     Route: 048
  16. Prochlorper susp 25 mg [Concomitant]
     Indication: Product used for unknown indication
     Route: 048
  17. Sennosides tablet 8,6 mg [Concomitant]
     Indication: Product used for unknown indication
     Route: 048
  18. Venlafaxine Cap 37.5 ER [Concomitant]
     Indication: Product used for unknown indication
     Route: 048
  19. Ventolin HFA AER [Concomitant]
     Indication: Product used for unknown indication
     Route: 048

REACTIONS (2)
  - Brain fog [Not Recovered/Not Resolved]
  - Nausea [Not Recovered/Not Resolved]

NARRATIVE: CASE EVENT DATE: 20230220
